FAERS Safety Report 5011498-2 (Version None)
Quarter: 2006Q2

REPORT INFORMATION
  Report Type: 
  Country: None (occurrence: None)
  Receive Date: 20060523
  Receipt Date: 20060512
  Transmission Date: 20061013
  Serious: Yes (Death, Hospitalization)
  Sender: FDA-Public Use
  Company Number: HQWYE822013APR06

PATIENT
  Age: 69 Year
  Sex: Male

DRUGS (14)
  1. CORDARONE [Suspect]
     Dosage: 200 MG 5X PER 1 WK ORAL
     Route: 048
     Dates: end: 20060217
  2. AMITRIPTYLINE HYDROCHLORIDE [Suspect]
     Dosage: 10 MG 1X PER 1 DAY ORAL
     Route: 048
     Dates: start: 20050131, end: 20060217
  3. ATARAX [Suspect]
     Dates: end: 20060217
  4. ACETAMINOPHEN [Suspect]
     Dates: end: 20060217
  5. DEPAKENE [Suspect]
     Indication: BIPOLAR I DISORDER
     Dosage: 250 MG 1X PER 1 DAY ORAL
     Route: 048
     Dates: start: 20051129, end: 20060217
  6. IDARAC [Suspect]
     Dosage: 200 MG 4X PER 1 DAY ORAL
     Route: 048
     Dates: start: 20060131, end: 20060217
  7. LANTUS [Suspect]
     Dosage: SC
     Route: 058
     Dates: end: 20060217
  8. NITRIDERM TTS (GLYCERYL TRINITRATE,) [Suspect]
     Dosage: TRANSDERMAL
     Route: 062
     Dates: end: 20060217
  9. RABEPRAZOLE SODIUM [Suspect]
     Dosage: 1 UNIT 1X PER 1 DAY ORAL
     Route: 048
     Dates: end: 20060217
  10. PREVISCAN (FLUINDIONE,) [Suspect]
     Indication: MYOCARDIAL ISCHAEMIA
     Dosage: 20 MG 1X PER 1 DAY ORAL
     Route: 048
     Dates: end: 20060217
  11. CLONAZEPAM [Suspect]
     Dates: end: 20060217
  12. SMECTA (ALUMINIUM HYDROXIDE-MAGNESIUM CARBONATE GEL/ALUMINIUM MAGNESIU [Suspect]
     Dosage: ORAL
     Route: 048
     Dates: end: 20060217
  13. ZOLPIDEM TARTRATE [Suspect]
     Dosage: ORAL
     Route: 048
     Dates: end: 20060217
  14. TRAMADOL HCL [Suspect]
     Dates: end: 20060217

REACTIONS (7)
  - ANOREXIA [None]
  - APHASIA [None]
  - CARDIAC DISORDER [None]
  - CEREBROVASCULAR ACCIDENT [None]
  - CONFUSIONAL STATE [None]
  - HEPATITIS FULMINANT [None]
  - RENAL FAILURE [None]
